FAERS Safety Report 4281618-6 (Version None)
Quarter: 2004Q1

REPORT INFORMATION
  Report Type: 
  Country: None (occurrence: None)
  Receive Date: 20040120
  Receipt Date: 20031013
  Transmission Date: 20041129
  Serious: No
  Sender: FDA-Public Use
  Company Number: 2003-10-2822

PATIENT
  Age: 73 Year
  Sex: Female
  Weight: 60.3284 kg

DRUGS (8)
  1. CLARINEX [Suspect]
     Dosage: ORAL
     Route: 048
  2. SYNTHROID [Concomitant]
  3. GUAIFENEX (PHENYLPROPANOLAMINE/PHENYLEPHRINE/GUAIFENESIN) [Concomitant]
  4. BIOTIN [Concomitant]
  5. VITAMIN B-12 [Concomitant]
  6. CALCIUM [Concomitant]
  7. MULTI-VITAMINS [Concomitant]
  8. DETROL [Concomitant]

REACTIONS (1)
  - CONSTIPATION [None]
